FAERS Safety Report 9449011 (Version 2)
Quarter: 2013Q3

REPORT INFORMATION
  Report Type: Report from Study
  Country: US (occurrence: US)
  Receive Date: 20130808
  Receipt Date: 20130816
  Transmission Date: 20140515
  Serious: Yes (Death)
  Sender: FDA-Public Use
  Company Number: GXBR2013US001518

PATIENT
  Age: 73 Year
  Sex: Female
  Weight: 70.2 kg

DRUGS (1)
  1. ENOXAPARIN SODIUM [Suspect]
     Dosage: 100 MG, QD
     Route: 058

REACTIONS (1)
  - Plasma cell myeloma [Fatal]
